FAERS Safety Report 7051716-2 (Version None)
Quarter: 2010Q4

REPORT INFORMATION
  Report Type: 
  Country: None (occurrence: None)
  Receive Date: 20101019
  Receipt Date: 20101014
  Transmission Date: 20110411
  Serious: Yes (Death, Hospitalization)
  Sender: FDA-Public Use
  Company Number: FR-SANOFI-AVENTIS-2010SA062624

PATIENT
  Age: 66 Year
  Sex: Male

DRUGS (1)
  1. LOVENOX [Suspect]
     Route: 058

REACTIONS (2)
  - HEPARIN-INDUCED THROMBOCYTOPENIA [None]
  - PERIPHERAL ISCHAEMIA [None]
